FAERS Safety Report 12591315 (Version 2)
Quarter: 2016Q3

REPORT INFORMATION
  Report Type: Spontaneous
  Country: US (occurrence: US)
  Receive Date: 20160726
  Receipt Date: 20160727
  Transmission Date: 20161109
  Serious: No
  Sender: FDA-Public Use
  Company Number: US-UNITED THERAPEUTICS-UNT-2016-005537

PATIENT
  Age: 55 Year
  Sex: Male
  Weight: 94.33 kg

DRUGS (1)
  1. REMODULIN [Suspect]
     Active Substance: TREPROSTINIL
     Indication: PULMONARY HYPERTENSION
     Dosage: 0.007 ?G/KG, CONTINUING
     Route: 041
     Dates: start: 20160209

REACTIONS (7)
  - Injection site discomfort [Unknown]
  - Flushing [Not Recovered/Not Resolved]
  - Device dislocation [Unknown]
  - Injection site erythema [Unknown]
  - Sluggishness [Not Recovered/Not Resolved]
  - Injection site pruritus [Unknown]
  - Drug dose omission [Unknown]

NARRATIVE: CASE EVENT DATE: 20160402
